FAERS Safety Report 9989710 (Version 1)
Quarter: 2014Q1

REPORT INFORMATION
  Report Type: Spontaneous
  Country: US (occurrence: None)
  Receive Date: 20140123
  Receipt Date: 20140123
  Transmission Date: 20141002
  Serious: Yes (Hospitalization)
  Sender: FDA-Public Use
  Company Number: UTC-038328

PATIENT
  Age: 58 Year
  Sex: Female

DRUGS (3)
  1. REMODULIN [Suspect]
     Indication: COR PULMONALE CHRONIC
     Dosage: 94.32 (0.0655 , 1 IN 1 MIN),INTRAVENOUS DRIP
     Route: 041
     Dates: start: 20120429
  2. TRACLEER (BOSENTAN)(UNKNOWN) [Concomitant]
  3. SILDENAFIL (UNKNOWN) [Concomitant]

REACTIONS (2)
  - Device related infection [None]
  - Injection site infection [None]
